FAERS Safety Report 4339835-2 (Version None)
Quarter: 2004Q2

REPORT INFORMATION
  Report Type: 
  Country: None (occurrence: None)
  Receive Date: 20040412
  Receipt Date: 20040405
  Transmission Date: 20050107
  Serious: Yes (Other)
  Sender: FDA-Public Use
  Company Number: 2002-04-2809

PATIENT
  Age: 44 Year
  Sex: Male
  Weight: 65 kg

DRUGS (2)
  1. REBETOL [Suspect]
     Indication: HEPATITIS C
     Dosage: 1200 MG QD ORAL
     Route: 048
     Dates: start: 20000701, end: 20010701
  2. VIRAFERON (INTERFERON ALFA-2B) INJECTABLE SOLUTION [Suspect]
     Indication: HEPATITIS C
     Dosage: 3 MU TIW SUBCUTANEOUS
     Route: 058
     Dates: start: 20000701, end: 20010701

REACTIONS (4)
  - HAIRY CELL LEUKAEMIA [None]
  - NEUTROPENIA [None]
  - SPLENOMEGALY [None]
  - THROMBOCYTHAEMIA [None]
